FAERS Safety Report 21521878 (Version 2)
Quarter: 2023Q1

REPORT INFORMATION
  Report Type: Report from Study
  Country: US (occurrence: US)
  Receive Date: 20221028
  Receipt Date: 20230214
  Transmission Date: 20230418
  Serious: Yes (Death, Hospitalization)
  Sender: FDA-Public Use
  Company Number: US-BAUSCH-BL-2022-024233

PATIENT
  Age: 50 Year
  Sex: Male

DRUGS (1)
  1. XIFAXAN [Suspect]
     Active Substance: RIFAXIMIN
     Indication: Product used for unknown indication
     Route: 065
     Dates: start: 20220405

REACTIONS (2)
  - Oesophageal haemorrhage [Fatal]
  - Ammonia increased [Recovering/Resolving]

NARRATIVE: CASE EVENT DATE: 20221018
